FAERS Safety Report 6816967-8 (Version None)
Quarter: 2010Q3

REPORT INFORMATION
  Report Type: 
  Country: None (occurrence: None)
  Receive Date: 20100706
  Receipt Date: 20100622
  Transmission Date: 20110219
  Serious: Yes (Other)
  Sender: FDA-Public Use
  Company Number: PHHY2010US40915

PATIENT
  Age: 71 Year
  Sex: Female
  Weight: 55.3 kg

DRUGS (9)
  1. ENABLEX [Suspect]
     Route: 048
  2. DETROL [Suspect]
     Indication: HYPERTONIC BLADDER
     Dosage: 1 DF, QD
     Route: 048
     Dates: start: 20090101
  3. FESOTERODINE (TOVIAZ) [Suspect]
     Indication: HYPERTONIC BLADDER
     Dosage: 1 DF, QD
     Route: 048
     Dates: start: 20100101, end: 20100101
  4. FOSAMAX [Concomitant]
  5. LIPITOR [Concomitant]
     Dosage: UNK
  6. DITROPAN [Concomitant]
     Dosage: UNK
  7. VESICARE [Concomitant]
     Dosage: UNK
  8. MICONAZOLE [Concomitant]
     Dosage: UNK
  9. PREMARIN [Concomitant]

REACTIONS (7)
  - CONSTIPATION [None]
  - DEPRESSION [None]
  - DYSURIA [None]
  - MALAISE [None]
  - MUSCLE DISORDER [None]
  - POLLAKIURIA [None]
  - URINARY INCONTINENCE [None]
